FAERS Safety Report 4804580-3 (Version None)
Quarter: 2005Q4

REPORT INFORMATION
  Report Type: 
  Country: None (occurrence: None)
  Receive Date: 20051017
  Receipt Date: 20051003
  Transmission Date: 20060501
  Serious: Yes (Life-Threatening, Hospitalization, Disabling)
  Sender: FDA-Public Use
  Company Number: 2005135298

PATIENT
  Age: 44 Year
  Sex: Male

DRUGS (6)
  1. VIAGRA [Suspect]
     Indication: ERECTILE DYSFUNCTION
     Dosage: 50 MG (50 MG AS NECESSARY), ORAL
     Route: 048
     Dates: start: 20040101
  2. APROVEL (IRBESARTAN) [Concomitant]
  3. CAPTOPRIL [Concomitant]
  4. OLCADIL [Concomitant]
  5. PAROXETINE HCL [Concomitant]
  6. AMLODIPINE [Concomitant]

REACTIONS (2)
  - INFARCTION [None]
  - STRESS [None]
